FAERS Safety Report 4556049-1 (Version None)
Quarter: 2005Q1

REPORT INFORMATION
  Report Type: 
  Country: None (occurrence: None)
  Receive Date: 20050119
  Receipt Date: 20050105
  Transmission Date: 20050727
  Serious: Yes (Hospitalization)
  Sender: FDA-Public Use
  Company Number: ZW-GLAXOSMITHKLINE-B0363499A

PATIENT
  Age: 34 Year
  Sex: Male

DRUGS (6)
  1. COMBIVIR [Suspect]
     Indication: HIV INFECTION
     Dosage: 1TAB TWICE PER DAY
     Route: 048
  2. TENOFOVIR [Suspect]
     Indication: HIV INFECTION
     Dosage: 300MG PER DAY
     Route: 048
  3. ISONIAZID [Concomitant]
  4. PYRAZINAMIDE [Concomitant]
  5. RIFAMPICIN [Concomitant]
  6. ETHAMBUTOL HCL [Concomitant]

REACTIONS (5)
  - ASTHENIA [None]
  - CHEST PAIN [None]
  - DIZZINESS [None]
  - HAEMOGLOBIN DECREASED [None]
  - NEUTROPENIC SEPSIS [None]
